FAERS Safety Report 8719625 (Version 8)
Quarter: 2013Q1

REPORT INFORMATION
  Report Type: Spontaneous
  Country: GR (occurrence: GR)
  Receive Date: 20120813
  Receipt Date: 20130328
  Transmission Date: 20140127
  Serious: Yes (Hospitalization, Other)
  Sender: FDA-Public Use
  Company Number: GR-AMGEN-GRCSP2012050369

PATIENT
  Sex: Female

DRUGS (1)
  1. ENBREL [Suspect]
     Indication: RHEUMATOID ARTHRITIS
     Dosage: 50 MG, WEEKLY

REACTIONS (4)
  - Back disorder [Recovering/Resolving]
  - Mononeuritis [Not Recovered/Not Resolved]
  - Headache [Recovering/Resolving]
  - Demyelination [Not Recovered/Not Resolved]
